FAERS Safety Report 24458259 (Version 1)
Quarter: 2024Q4

REPORT INFORMATION
  Report Type: Spontaneous
  Country: CA (occurrence: CA)
  Receive Date: 20241018
  Receipt Date: 20241018
  Transmission Date: 20250115
  Serious: Yes (Other)
  Sender: ROCHE
  Company Number: CA-ROCHE-10000102568

PATIENT
  Sex: Male

DRUGS (1)
  1. AVASTIN [Suspect]
     Active Substance: BEVACIZUMAB
     Indication: Colorectal cancer metastatic
     Route: 042

REACTIONS (9)
  - Constipation [Unknown]
  - Decreased appetite [Unknown]
  - Dehydration [Unknown]
  - Drug ineffective [Unknown]
  - Fatigue [Unknown]
  - Gastrointestinal disorder [Unknown]
  - Neutropenia [Unknown]
  - Sleep disorder [Unknown]
  - Somnolence [Unknown]
